FAERS Safety Report 6886345-4 (Version None)
Quarter: 2010Q3

REPORT INFORMATION
  Report Type: 
  Country: None (occurrence: None)
  Receive Date: 20100729
  Receipt Date: 20090321
  Transmission Date: 20110219
  Serious: No
  Sender: FDA-Public Use
  Company Number: US-PFIZER INC-2009178851

PATIENT
  Sex: Male
  Weight: 79 kg

DRUGS (1)
  1. CELEBREX [Suspect]
     Indication: ARTHRITIS
     Dosage: 200 MG ONCE OR TWICE DAILY
     Dates: start: 20081001, end: 20090301

REACTIONS (2)
  - ARTHRALGIA [None]
  - RASH PRURITIC [None]
